FAERS Safety Report 7047820-5 (Version None)
Quarter: 2010Q4

REPORT INFORMATION
  Report Type: 
  Country: None (occurrence: None)
  Receive Date: 20101015
  Receipt Date: 20101012
  Transmission Date: 20110411
  Serious: No
  Sender: FDA-Public Use
  Company Number: US-PFIZER INC-2010129895

PATIENT
  Sex: Female

DRUGS (2)
  1. MEDROL [Suspect]
     Dosage: UNK
  2. METHOTREXATE [Suspect]
     Dosage: 2 TIMES PER WEEK

REACTIONS (3)
  - ABDOMINAL DISCOMFORT [None]
  - ALOPECIA [None]
  - DRUG INEFFECTIVE [None]
